FAERS Safety Report 21124968 (Version 2)
Quarter: 2023Q2

REPORT INFORMATION
  Report Type: Report from Study
  Country: CA (occurrence: CA)
  Receive Date: 20220725
  Receipt Date: 20230530
  Transmission Date: 20230721
  Serious: Yes (Other)
  Sender: FDA-Public Use
  Company Number: CA-TAKEDA-2022TUS049564

PATIENT
  Age: 42 Year
  Sex: Female

DRUGS (3)
  1. PONATINIB [Suspect]
     Active Substance: PONATINIB
     Indication: Acute lymphocytic leukaemia
     Dosage: 15 MILLIGRAM, QD
     Route: 048
     Dates: start: 20191010
  2. VITAMIN D [Concomitant]
     Active Substance: VITAMIN D NOS
     Dosage: UNK
     Route: 065
  3. CALCIUM [Concomitant]
     Active Substance: CALCIUM
     Dosage: UNK
     Route: 065

REACTIONS (3)
  - Acute lymphocytic leukaemia recurrent [Unknown]
  - COVID-19 [Unknown]
  - Blood iron increased [Unknown]
